FAERS Safety Report 23152407 (Version 2)
Quarter: 2024Q1

REPORT INFORMATION
  Report Type: Spontaneous
  Country: US (occurrence: US)
  Receive Date: 20231107
  Receipt Date: 20240205
  Transmission Date: 20240409
  Serious: No
  Sender: FDA-Public Use
  Company Number: US-BRISTOL-MYERS SQUIBB COMPANY-2023-158158

PATIENT
  Age: 63 Year
  Sex: Female
  Weight: 66.1 kg

DRUGS (2)
  1. NULOJIX [Suspect]
     Active Substance: BELATACEPT
     Indication: Renal transplant
     Route: 042
  2. NULOJIX [Suspect]
     Active Substance: BELATACEPT
     Route: 042

REACTIONS (1)
  - Weight increased [Unknown]
